FAERS Safety Report 11260507 (Version 1)
Quarter: 2015Q3

REPORT INFORMATION
  Report Type: Spontaneous
  Country: FR (occurrence: FR)
  Receive Date: 20150710
  Receipt Date: 20150710
  Transmission Date: 20151125
  Serious: Yes (Hospitalization)
  Sender: FDA-Public Use
  Company Number: FR-SA-2015SA097517

PATIENT
  Sex: Female

DRUGS (10)
  1. PLAVIX [Suspect]
     Active Substance: CLOPIDOGREL BISULFATE
     Indication: CORONARY ARTERY DISEASE
     Route: 048
     Dates: end: 20150530
  2. KARDEGIC [Concomitant]
     Active Substance: ASPIRIN LYSINE
  3. ROCEPHINE [Concomitant]
     Active Substance: CEFTRIAXONE SODIUM
  4. SOLUPRED [Concomitant]
     Active Substance: PREDNISOLONE
  5. TAVANIC [Suspect]
     Active Substance: LEVOFLOXACIN
     Indication: LUNG INFECTION
     Route: 065
     Dates: end: 20150522
  6. NEORAL [Suspect]
     Active Substance: CYCLOSPORINE
     Indication: PROPHYLAXIS AGAINST TRANSPLANT REJECTION
     Route: 065
  7. ATROVENT [Concomitant]
     Active Substance: IPRATROPIUM BROMIDE
  8. ELISOR [Concomitant]
     Active Substance: PRAVASTATIN SODIUM
  9. SOTALEX [Concomitant]
     Active Substance: SOTALOL
  10. LASILIX [Suspect]
     Active Substance: FUROSEMIDE
     Indication: HYPERTENSION
     Route: 048
     Dates: end: 20150521

REACTIONS (1)
  - Acute kidney injury [Recovering/Resolving]
